FAERS Safety Report 8355703-3 (Version None)
Quarter: 2012Q2

REPORT INFORMATION
  Report Type: 
  Country: None (occurrence: None)
  Receive Date: 20120514
  Receipt Date: 20120501
  Transmission Date: 20120825
  Serious: Yes (Other)
  Sender: FDA-Public Use
  Company Number: BN-PAR PHARMACEUTICAL, INC-2012SCPR004368

PATIENT

DRUGS (1)
  1. DOXYCYCLINE [Suspect]
     Indication: MASTITIS
     Dosage: 100 MG, QD
     Route: 065

REACTIONS (3)
  - HERPES OESOPHAGITIS [None]
  - ORAL HERPES [None]
  - OESOPHAGEAL ULCER [None]
